FAERS Safety Report 9218448 (Version 1)
Quarter: 2013Q2

REPORT INFORMATION
  Report Type: Spontaneous
  Country: JP (occurrence: JP)
  Receive Date: 20130409
  Receipt Date: 20130409
  Transmission Date: 20140414
  Serious: Yes (Death, Hospitalization, Other)
  Sender: FDA-Public Use
  Company Number: JP-009507513-1303JPN003586

PATIENT
  Age: 64 Year
  Sex: Male

DRUGS (1)
  1. ESLAX [Suspect]
     Indication: NEUROMUSCULAR BLOCKING THERAPY
     Dosage: 620 MICROGRAM, QD
     Route: 042
     Dates: start: 20111227, end: 20111227

REACTIONS (3)
  - Multi-organ failure [Fatal]
  - Neuromuscular block prolonged [Recovered/Resolved]
  - Pulmonary oedema [Unknown]
